FAERS Safety Report 19758691 (Version 2)
Quarter: 2025Q3

REPORT INFORMATION
  Report Type: Spontaneous
  Country: EU (occurrence: EU)
  Receive Date: 20210827
  Receipt Date: 20250731
  Transmission Date: 20251021
  Serious: Yes (Hospitalization, Other)
  Sender: PFIZER
  Company Number: None

PATIENT
  Sex: Female
  Weight: 1.16 kg

DRUGS (2)
  1. DOXORUBICIN HYDROCHLORIDE [Suspect]
     Active Substance: DOXORUBICIN HYDROCHLORIDE
     Indication: Sarcoma
     Route: 064
     Dates: start: 20200323, end: 20200602
  2. IFOSFAMIDE [Suspect]
     Active Substance: IFOSFAMIDE
     Indication: Sarcoma
     Route: 064
     Dates: start: 20200324, end: 20200604

REACTIONS (6)
  - Maternal exposure during pregnancy [Recovering/Resolving]
  - Anaemia neonatal [Recovered/Resolved]
  - Premature baby [Recovered/Resolved]
  - Foetal growth restriction [Recovering/Resolving]
  - Oligohydramnios [Recovering/Resolving]
  - Foetal arrhythmia [Recovering/Resolving]

NARRATIVE: CASE EVENT DATE: 20200323
